FAERS Safety Report 17533041 (Version 1)
Quarter: 2020Q1

REPORT INFORMATION
  Report Type: Spontaneous
  Country: US (occurrence: US)
  Receive Date: 20200304
  Receipt Date: 20200304
  Transmission Date: 20200409
  Serious: No
  Sender: FDA-Public Use
  Company Number: None

PATIENT
  Age: 66 Year
  Sex: Female

DRUGS (1)
  1. REVLIMID [Suspect]
     Active Substance: LENALIDOMIDE
     Indication: MYELODYSPLASTIC SYNDROME
     Dosage: THERAPY STOP DATE 10-MAR-2020
     Route: 048
     Dates: start: 20190603

REACTIONS (1)
  - Anaemia [None]

NARRATIVE: CASE EVENT DATE: 20200302
